FAERS Safety Report 17944478 (Version 1)
Quarter: 2020Q2

REPORT INFORMATION
  Report Type: Spontaneous
  Country: BR (occurrence: BR)
  Receive Date: 20200625
  Receipt Date: 20200625
  Transmission Date: 20200714
  Serious: Yes (Hospitalization, Other)
  Sender: FDA-Public Use
  Company Number: BR-PFIZER INC-2020243309

PATIENT
  Age: 82 Year
  Sex: Male

DRUGS (5)
  1. AMLODIPINE BESILATE [Suspect]
     Active Substance: AMLODIPINE BESYLATE
     Dosage: UNK
  2. METFORMIN [Suspect]
     Active Substance: METFORMIN HYDROCHLORIDE
     Dosage: UNK
  3. VALSARTAN. [Suspect]
     Active Substance: VALSARTAN
     Dosage: 320 MG, DAILY
  4. EZETIMIBE/ROSUVASTATIN [Concomitant]
     Active Substance: EZETIMIBE\ROSUVASTATIN
     Indication: DYSLIPIDAEMIA
     Dosage: UNK
  5. TRIMETAZIDINE [Concomitant]
     Active Substance: TRIMETAZIDINE
     Indication: MYOCARDIAL ISCHAEMIA
     Dosage: 70 MG, DAILY

REACTIONS (2)
  - Urosepsis [Unknown]
  - Weight decreased [Not Recovered/Not Resolved]
